FAERS Safety Report 7122302-0 (Version None)
Quarter: 2010Q4

REPORT INFORMATION
  Report Type: 
  Country: None (occurrence: None)
  Receive Date: 20101124
  Receipt Date: 20101117
  Transmission Date: 20110411
  Serious: Yes (Other)
  Sender: FDA-Public Use
  Company Number: US-ABBOTT-10P-163-0686226-00

PATIENT
  Sex: Female
  Weight: 48.578 kg

DRUGS (18)
  1. HUMIRA [Suspect]
     Indication: RHEUMATOID ARTHRITIS
     Dates: start: 20080101, end: 20100101
  2. VALIUM [Concomitant]
     Indication: PRODUCT USED FOR UNKNOWN INDICATION
  3. SPIRIVA [Concomitant]
     Indication: ASTHMA
  4. LEVOTHYROXINE SODIUM [Concomitant]
     Indication: HYPOTHYROIDISM
  5. SPIRONOLACTONE [Concomitant]
     Indication: FLUID RETENTION
     Dates: start: 19950101
  6. SOMA [Concomitant]
     Indication: MUSCLE RELAXANT THERAPY
  7. LASIX [Concomitant]
     Indication: FLUID RETENTION
  8. DIGOXIN [Concomitant]
     Indication: MYOCARDIAL INFARCTION
  9. K-TAB [Concomitant]
     Indication: PRODUCT USED FOR UNKNOWN INDICATION
  10. IMURAN [Concomitant]
     Indication: ARTHRITIS
  11. COZAAR [Concomitant]
     Indication: HYPERTENSION
  12. VYTORIN [Concomitant]
     Indication: BLOOD CHOLESTEROL INCREASED
     Dosage: 10/20 MG
  13. TOPROL-XL [Concomitant]
     Indication: HYPERTENSION
  14. PLAVIX [Concomitant]
     Indication: BLOOD CHOLESTEROL INCREASED
  15. ISOSORBIDE DINITRATE [Concomitant]
     Indication: MYOCARDIAL INFARCTION
  16. NASONEX [Concomitant]
     Indication: ASTHMA
  17. PROVENTAL INHAILER [Concomitant]
     Indication: ASTHMA
  18. OXYCODONE HCL [Concomitant]
     Indication: PAIN

REACTIONS (4)
  - HEART RATE DECREASED [None]
  - LIPOMA [None]
  - OEDEMA PERIPHERAL [None]
  - RHEUMATOID ARTHRITIS [None]
